FAERS Safety Report 4553407-6 (Version None)
Quarter: 2005Q1

REPORT INFORMATION
  Report Type: 
  Country: None (occurrence: None)
  Receive Date: 20050112
  Receipt Date: 20050104
  Transmission Date: 20050727
  Serious: Yes (Hospitalization, Other)
  Sender: FDA-Public Use
  Company Number: HQWYE393405JAN05

PATIENT
  Age: 37 Year
  Sex: Male

DRUGS (6)
  1. RAPAMUNE [Suspect]
     Indication: PROPHYLAXIS AGAINST TRANSPLANT REJECTION
     Dosage: 5 MG 1X PER 1 DAY, ORAL
     Route: 048
     Dates: start: 20041103, end: 20041228
  2. PREDNISONE [Concomitant]
  3. CELLCEPT [Concomitant]
  4. ATENOLOL [Concomitant]
  5. MULTIVITAMINS, COMBINATIONS (MULTIVITAMINS, COMBINATIONS) [Concomitant]
  6. FABRAZYME (AGALSIDASE BETA) [Concomitant]

REACTIONS (2)
  - ANAEMIA [None]
  - KIDNEY TRANSPLANT REJECTION [None]
